FAERS Safety Report 7090001-X (Version None)
Quarter: 2010Q4

REPORT INFORMATION
  Report Type: 
  Country: None (occurrence: None)
  Receive Date: 20101109
  Receipt Date: 20101101
  Transmission Date: 20110411
  Serious: Yes (Hospitalization)
  Sender: FDA-Public Use
  Company Number: 2007BI019251

PATIENT
  Age: 54 Year
  Sex: Female

DRUGS (2)
  1. AVONEX [Suspect]
     Indication: MULTIPLE SCLEROSIS
     Route: 030
     Dates: start: 19970601, end: 20030101
  2. AVONEX [Suspect]
     Route: 030

REACTIONS (4)
  - ANKLE FRACTURE [None]
  - FALL [None]
  - LIMB INJURY [None]
  - STAPHYLOCOCCAL INFECTION [None]
